FAERS Safety Report 13851548 (Version 1)
Quarter: 2017Q3

REPORT INFORMATION
  Report Type: Spontaneous
  Country: NZ (occurrence: NZ)
  Receive Date: 20170809
  Receipt Date: 20170809
  Transmission Date: 20171127
  Serious: Yes (Hospitalization, Other)
  Sender: FDA-Public Use
  Company Number: NZ-JNJFOC-20170624782

PATIENT
  Age: 24 Year
  Sex: Male

DRUGS (7)
  1. REMICADE [Suspect]
     Active Substance: INFLIXIMAB
     Indication: COLITIS ULCERATIVE
     Route: 042
  2. 6-MP [Concomitant]
     Active Substance: MERCAPTOPURINE
     Route: 065
     Dates: start: 20170323
  3. 6-MP [Concomitant]
     Active Substance: MERCAPTOPURINE
     Route: 065
  4. REMICADE [Suspect]
     Active Substance: INFLIXIMAB
     Indication: COLITIS ULCERATIVE
     Route: 042
     Dates: start: 20161019, end: 20170621
  5. PENTASA [Concomitant]
     Active Substance: MESALAMINE
     Route: 065
  6. REMICADE [Suspect]
     Active Substance: INFLIXIMAB
     Indication: COLITIS ULCERATIVE
     Route: 042
  7. PENTASA [Concomitant]
     Active Substance: MESALAMINE
     Route: 065
     Dates: start: 20170323

REACTIONS (6)
  - Colitis ulcerative [Not Recovered/Not Resolved]
  - Dehydration [Unknown]
  - Treatment failure [Unknown]
  - Small intestinal obstruction [Unknown]
  - Acute kidney injury [Unknown]
  - Phlebitis [Unknown]

NARRATIVE: CASE EVENT DATE: 20170620
